FAERS Safety Report 15737452 (Version 1)
Quarter: 2018Q4

REPORT INFORMATION
  Report Type: Spontaneous
  Country: US (occurrence: US)
  Receive Date: 20181218
  Receipt Date: 20181218
  Transmission Date: 20190205
  Serious: No
  Sender: FDA-Public Use
  Company Number: US-JNJFOC-20181132586

PATIENT
  Age: 63 Year
  Sex: Female
  Weight: 61.24 kg

DRUGS (5)
  1. ZYRTEC [Suspect]
     Active Substance: CETIRIZINE HYDROCHLORIDE
     Indication: HYPERSENSITIVITY
     Dosage: 2 10MG PILLS TWICE A DAY MORNING AND NIGHT
     Route: 048
     Dates: start: 20181117
  2. BENADRYL ALLERGY ULTRATAB [Concomitant]
     Active Substance: DIPHENHYDRAMINE HYDROCHLORIDE
     Indication: HYPERSENSITIVITY
     Dosage: AT NIGHT ONLY
     Route: 048
     Dates: start: 20181117
  3. ZYRTEC [Suspect]
     Active Substance: CETIRIZINE HYDROCHLORIDE
     Indication: RASH PRURITIC
     Dosage: 2 10MG PILLS TWICE A DAY MORNING AND NIGHT
     Route: 048
     Dates: start: 20181117
  4. BENADRYL ALLERGY ULTRATAB [Concomitant]
     Active Substance: DIPHENHYDRAMINE HYDROCHLORIDE
     Indication: RASH PRURITIC
     Dosage: AT NIGHT ONLY
     Route: 048
     Dates: start: 20181117
  5. AVEENO BABY CONTINUOUS PROTECTION ZINC SUNSCREEN SPF50 3OUNCE [Concomitant]
     Indication: PROPHYLAXIS AGAINST SOLAR RADIATION
     Dosage: LIBERAL AMOUNT EVERY DAY TO HELP COVER MY SKIN FROM THE SUN.
     Route: 061
     Dates: start: 20181107

REACTIONS (3)
  - Product use in unapproved indication [Unknown]
  - Overdose [Unknown]
  - Off label use [Unknown]

NARRATIVE: CASE EVENT DATE: 20181117
